FAERS Safety Report 8205538-7 (Version None)
Quarter: 2012Q1

REPORT INFORMATION
  Report Type: 
  Country: None (occurrence: None)
  Receive Date: 20120313
  Receipt Date: 20120227
  Transmission Date: 20120608
  Serious: Yes (Hospitalization)
  Sender: FDA-Public Use
  Company Number: GB-WATSON-2012-03852

PATIENT
  Age: 81 Year
  Sex: Female

DRUGS (10)
  1. CALCIUM [Concomitant]
     Indication: PRODUCT USED FOR UNKNOWN INDICATION
     Route: 065
  2. CITALOPRAM HYDROBROMIDE [Concomitant]
     Indication: PRODUCT USED FOR UNKNOWN INDICATION
     Route: 065
  3. IMODIUM [Concomitant]
     Indication: PRODUCT USED FOR UNKNOWN INDICATION
     Route: 065
  4. GABAPENTIN [Suspect]
     Indication: PAIN
     Route: 065
  5. ACYCLOVIR [Suspect]
     Dosage: UNKNOWN
     Route: 042
  6. ACYCLOVIR [Suspect]
     Indication: HERPES ZOSTER
     Dosage: 800 MG TABLETS BRAND RANBAXY, UNKNOWN
     Route: 065
  7. ACYCLOVIR [Suspect]
     Indication: HERPES ZOSTER
     Dosage: 5 DF, DAILY
     Route: 042
  8. ALENDRONIC ACID [Concomitant]
     Indication: PRODUCT USED FOR UNKNOWN INDICATION
     Route: 065
  9. LANSOPRAZOLE [Concomitant]
     Indication: PRODUCT USED FOR UNKNOWN INDICATION
     Route: 065
  10. MIRTAZAPINE [Concomitant]
     Indication: PRODUCT USED FOR UNKNOWN INDICATION
     Route: 065

REACTIONS (4)
  - HALLUCINATION [None]
  - APHASIA [None]
  - NIGHTMARE [None]
  - EPISTAXIS [None]
